FAERS Safety Report 15530745 (Version 3)
Quarter: 2018Q4

REPORT INFORMATION
  Report Type: Report from Study
  Country: JP (occurrence: JP)
  Receive Date: 20181018
  Receipt Date: 20181121
  Transmission Date: 20190205
  Serious: Yes (Death)
  Sender: FDA-Public Use
  Company Number: JP-MITSUBISHI TANABE PHARMA CORPORATION-MTPC2018-0026936

PATIENT
  Age: 67 Year
  Sex: Male

DRUGS (23)
  1. RADICUT [Suspect]
     Active Substance: EDARAVONE
     Route: 041
     Dates: start: 20171016, end: 20171025
  2. RADICUT [Suspect]
     Active Substance: EDARAVONE
     Route: 041
     Dates: start: 20180410, end: 20180419
  3. RADICUT [Suspect]
     Active Substance: EDARAVONE
     Route: 041
     Dates: start: 20180611, end: 20180620
  4. RADICUT [Suspect]
     Active Substance: EDARAVONE
     Route: 041
     Dates: start: 20180109, end: 20180118
  5. RADICUT [Suspect]
     Active Substance: EDARAVONE
     Route: 041
     Dates: start: 20180510, end: 20180519
  6. RADICUT [Suspect]
     Active Substance: EDARAVONE
     Route: 041
     Dates: start: 20170105, end: 20170114
  7. RADICUT [Suspect]
     Active Substance: EDARAVONE
     Route: 041
     Dates: start: 20171211, end: 20171220
  8. RADICUT [Suspect]
     Active Substance: EDARAVONE
     Route: 041
     Dates: start: 20180709, end: 20180718
  9. RADICUT [Suspect]
     Active Substance: EDARAVONE
     Route: 041
     Dates: start: 20180910, end: 20180919
  10. RILUZOLE. [Concomitant]
     Active Substance: RILUZOLE
     Indication: AMYOTROPHIC LATERAL SCLEROSIS
     Route: 048
     Dates: end: 20181011
  11. RADICUT [Suspect]
     Active Substance: EDARAVONE
     Route: 041
     Dates: start: 20170816, end: 20170825
  12. RADICUT [Suspect]
     Active Substance: EDARAVONE
     Route: 041
     Dates: start: 20180813, end: 20180822
  13. PUROMAKKUD [Concomitant]
     Route: 048
     Dates: start: 20161226
  14. RADICUT [Suspect]
     Active Substance: EDARAVONE
     Route: 041
     Dates: start: 20170403, end: 20170412
  15. RADICUT [Suspect]
     Active Substance: EDARAVONE
     Route: 041
     Dates: start: 20170510, end: 20170519
  16. RADICUT [Suspect]
     Active Substance: EDARAVONE
     Route: 041
     Dates: start: 20170606, end: 20170615
  17. RADICUT [Suspect]
     Active Substance: EDARAVONE
     Route: 041
     Dates: start: 20170911, end: 20170920
  18. RADICUT [Suspect]
     Active Substance: EDARAVONE
     Route: 041
     Dates: start: 20180312, end: 20180321
  19. RADICUT [Suspect]
     Active Substance: EDARAVONE
     Indication: AMYOTROPHIC LATERAL SCLEROSIS
     Route: 041
     Dates: start: 2016
  20. RADICUT [Suspect]
     Active Substance: EDARAVONE
     Route: 041
     Dates: start: 20170201, end: 20170210
  21. RADICUT [Suspect]
     Active Substance: EDARAVONE
     Route: 041
     Dates: start: 20170306, end: 20170315
  22. RADICUT [Suspect]
     Active Substance: EDARAVONE
     Route: 041
     Dates: start: 20180213, end: 20180222
  23. RADICUT [Suspect]
     Active Substance: EDARAVONE
     Route: 041
     Dates: start: 20171113, end: 20171122

REACTIONS (1)
  - No adverse event [Unknown]
